FAERS Safety Report 10354908 (Version 1)
Quarter: 2014Q3

REPORT INFORMATION
  Report Type: Spontaneous
  Country: FR (occurrence: FR)
  Receive Date: 20140731
  Receipt Date: 20140731
  Transmission Date: 20150326
  Serious: Yes (Hospitalization)
  Sender: FDA-Public Use
  Company Number: FR-GLAXOSMITHKLINE-B1007342A

PATIENT
  Sex: Female

DRUGS (4)
  1. ZOPHREN [Suspect]
     Active Substance: ONDANSETRON
     Indication: ABORTION INDUCED
     Dosage: 4MG SINGLE DOSE
     Route: 042
     Dates: start: 20140530, end: 20140530
  2. CYTOTEC [Suspect]
     Active Substance: MISOPROSTOL
     Indication: ABORTION INDUCED
     Dosage: 400MCG SINGLE DOSE
     Route: 048
     Dates: start: 20140530, end: 20140530
  3. LAMALINE [Suspect]
     Active Substance: ACETAMINOPHEN\CAFFEINE\OPIUM
     Indication: ABORTION INDUCED
     Dosage: 1SUP SINGLE DOSE
     Route: 054
     Dates: start: 20140530, end: 20140530
  4. IBUPROFENE [Suspect]
     Active Substance: IBUPROFEN
     Indication: ABORTION INDUCED
     Route: 048
     Dates: start: 20140530, end: 20140530

REACTIONS (5)
  - Pruritus generalised [Recovered/Resolved]
  - Eyelid oedema [Recovered/Resolved]
  - Exposure during pregnancy [Unknown]
  - Off label use [Unknown]
  - Dyspnoea [Recovered/Resolved]

NARRATIVE: CASE EVENT DATE: 20140530
